FAERS Safety Report 16478148 (Version 1)
Quarter: 2019Q2

REPORT INFORMATION
  Report Type: Spontaneous
  Country: US (occurrence: US)
  Receive Date: 20190626
  Receipt Date: 20190626
  Transmission Date: 20190711
  Serious: No
  Sender: FDA-Public Use
  Company Number: US-DRREDDYS-USA/USA/19/0111149

PATIENT
  Sex: Female

DRUGS (1)
  1. IMATINIB MESYLATE TABLETS [Suspect]
     Active Substance: IMATINIB MESYLATE
     Indication: PRODUCT USED FOR UNKNOWN INDICATION
     Route: 048

REACTIONS (4)
  - Headache [Unknown]
  - Liver disorder [Unknown]
  - Tremor [Unknown]
  - Impaired work ability [Unknown]
